FAERS Safety Report 19732616 (Version 2)
Quarter: 2021Q4

REPORT INFORMATION
  Report Type: Spontaneous
  Country: US (occurrence: US)
  Receive Date: 20210822
  Receipt Date: 20211007
  Transmission Date: 20220303
  Serious: No
  Sender: FDA-Public Use
  Company Number: US-JNJFOC-20210813593

PATIENT
  Sex: Female

DRUGS (2)
  1. INVOKANA [Suspect]
     Active Substance: CANAGLIFLOZIN
     Indication: Product used for unknown indication
     Dosage: 100MG UP TO 300MG
     Route: 048
     Dates: start: 201410, end: 201504
  2. INVOKANA [Suspect]
     Active Substance: CANAGLIFLOZIN
     Dosage: 100MG UP TO 300MG
     Route: 048
     Dates: start: 201410, end: 201504

REACTIONS (1)
  - Drug ineffective [Unknown]
